FAERS Safety Report 5153509-X (Version None)
Quarter: 2006Q4

REPORT INFORMATION
  Report Type: 
  Country: None (occurrence: None)
  Receive Date: 20061117
  Receipt Date: 20060928
  Transmission Date: 20070319
  Serious: Yes (Other)
  Sender: FDA-Public Use
  Company Number: SE-ABBOTT-06P-150-0345402-00

PATIENT
  Age: 58 Year
  Sex: Male
  Weight: 119 kg

DRUGS (1)
  1. REDUCTIL 15MG [Suspect]
     Indication: OBESITY
     Route: 048
     Dates: start: 20060907, end: 20060909

REACTIONS (22)
  - ALANINE AMINOTRANSFERASE INCREASED [None]
  - APATHY [None]
  - ASPARTATE AMINOTRANSFERASE INCREASED [None]
  - C-REACTIVE PROTEIN INCREASED [None]
  - CHILLS [None]
  - CHROMATURIA [None]
  - DEPRESSED MOOD [None]
  - DIZZINESS [None]
  - ERYSIPELAS [None]
  - FATIGUE [None]
  - FLUSHING [None]
  - GAMMA-GLUTAMYLTRANSFERASE INCREASED [None]
  - HEADACHE [None]
  - HYPERHIDROSIS [None]
  - IMPAIRED WORK ABILITY [None]
  - MALAISE [None]
  - NAUSEA [None]
  - PAIN [None]
  - PURPURA [None]
  - PYREXIA [None]
  - RASH [None]
  - SKIN REACTION [None]
